FAERS Safety Report 22320703 (Version 1)
Quarter: 2023Q2

REPORT INFORMATION
  Report Type: Spontaneous
  Country: US (occurrence: US)
  Receive Date: 20230515
  Receipt Date: 20230515
  Transmission Date: 20230722
  Serious: No
  Sender: FDA-Public Use
  Company Number: US-TEVA-2023-US-2884327

PATIENT
  Sex: Female

DRUGS (1)
  1. ETONOGESTREL/ETHINYL ESTRADIOL [Suspect]
     Active Substance: ETHINYL ESTRADIOL\ETONOGESTREL
     Indication: Product used for unknown indication
     Dosage: VAGINAL RING, 0.120 MG / 0.015 MG
     Route: 067
     Dates: start: 2021

REACTIONS (4)
  - Skin irritation [Unknown]
  - Mood swings [Unknown]
  - Emotional disorder [Unknown]
  - Device defective [Unknown]
